FAERS Safety Report 4667505-X (Version None)
Quarter: 2005Q2

REPORT INFORMATION
  Report Type: 
  Country: None (occurrence: None)
  Receive Date: 20050519
  Receipt Date: 20050519
  Transmission Date: 20051028
  Serious: Yes (Life-Threatening)
  Sender: FDA-Public Use
  Company Number: None

PATIENT
  Sex: Male
  Weight: 83.9154 kg

DRUGS (11)
  1. ZELNORM [Suspect]
     Indication: CONSTIPATION
     Dosage: 6MG  BID ORAL
     Route: 048
     Dates: start: 20050513, end: 20050517
  2. PROGRAF [Suspect]
     Indication: HEART TRANSPLANT
     Dosage: 3MG BID ORAL
     Route: 048
     Dates: start: 20050423, end: 20050517
  3. PROGRAF [Suspect]
     Indication: IMMUNOSUPPRESSION
     Dosage: 3MG BID ORAL
     Route: 048
     Dates: start: 20050423, end: 20050517
  4. THEOPHYLLINE [Concomitant]
  5. MARINOL [Concomitant]
  6. VALCYTE [Concomitant]
  7. LISINOPRIL [Concomitant]
  8. LASIX [Concomitant]
  9. TYLENOL (CAPLET) [Concomitant]
  10. PREDNISONE TAB [Concomitant]
  11. CELLCEPT [Concomitant]

REACTIONS (1)
  - DRUG LEVEL INCREASED [None]
